FAERS Safety Report 26169559 (Version 2)
Quarter: 2025Q4

REPORT INFORMATION
  Report Type: Spontaneous
  Country: JP (occurrence: JP)
  Receive Date: 20251217
  Receipt Date: 20251224
  Transmission Date: 20260117
  Serious: Yes (Other)
  Sender: MERCK SHARP & DOHME LLC
  Company Number: JP-009507513-2360806

PATIENT
  Age: 9 Decade
  Sex: Male

DRUGS (2)
  1. KEYTRUDA [Suspect]
     Active Substance: PEMBROLIZUMAB
     Indication: Bladder cancer
     Dates: start: 20240526
  2. ENFORTUMAB VEDOTIN [Suspect]
     Active Substance: ENFORTUMAB VEDOTIN
     Indication: Bladder cancer
     Dates: start: 20240806, end: 202409

REACTIONS (5)
  - Immune-mediated hepatic disorder [Unknown]
  - Adrenocorticotropic hormone deficiency [Unknown]
  - COVID-19 [Unknown]
  - Immune-mediated hypophysitis [Unknown]
  - Malignant neoplasm progression [Unknown]
